APPROVED DRUG PRODUCT: AZITHROMYCIN
Active Ingredient: AZITHROMYCIN
Strength: EQ 500MG BASE/VIAL
Dosage Form/Route: INJECTABLE;INJECTION
Application: A065179 | Product #001 | TE Code: AP
Applicant: FRESENIUS KABI USA LLC
Approved: Dec 13, 2005 | RLD: No | RS: No | Type: RX